FAERS Safety Report 8783183 (Version 2)
Quarter: 2013Q2

REPORT INFORMATION
  Report Type: Report from Study
  Country: US (occurrence: US)
  Receive Date: 20120913
  Receipt Date: 20130412
  Transmission Date: 20140414
  Serious: No
  Sender: FDA-Public Use
  Company Number: US-VERTEX PHARMACEUTICAL INC.-AE-2012-009592

PATIENT
  Age: 62 Year
  Sex: Male

DRUGS (3)
  1. VX-950 (TELAPREVIR) [Suspect]
     Indication: HEPATITIS C
     Dosage: 750 MG, TID
     Route: 048
     Dates: start: 20120204
  2. PEGASYS [Suspect]
     Indication: HEPATITIS C
     Dates: start: 20120204
  3. RIBAVIRIN [Suspect]
     Indication: HEPATITIS C
     Dates: start: 20120204

REACTIONS (5)
  - Decreased appetite [Not Recovered/Not Resolved]
  - Alopecia [Not Recovered/Not Resolved]
  - Drug ineffective [Not Recovered/Not Resolved]
  - Anaemia [Unknown]
  - Blood iron decreased [Unknown]
